FAERS Safety Report 10226688 (Version 4)
Quarter: 2014Q3

REPORT INFORMATION
  Report Type: Report from Study
  Country: US (occurrence: US)
  Receive Date: 20140609
  Receipt Date: 20140715
  Transmission Date: 20150326
  Serious: Yes (Hospitalization)
  Sender: FDA-Public Use
  Company Number: US-BRISTOL-MYERS SQUIBB COMPANY-20876694

PATIENT
  Age: 55 Year
  Sex: Female
  Weight: 80.54 kg

DRUGS (30)
  1. BENADRYL [Concomitant]
     Active Substance: DIPHENHYDRAMINE HYDROCHLORIDE
     Dates: start: 20140416
  2. METHYLPREDNISOLONE [Concomitant]
     Active Substance: METHYLPREDNISOLONE
     Dosage: 19-MAY 24 MG,20-MAY 20MG, 21-MAY 16MG, 22-MAY 12MG, 23-MAY 8MG, 24-MAY 4MG
     Dates: start: 20140519, end: 20140528
  3. LOVENOX [Concomitant]
     Active Substance: ENOXAPARIN SODIUM
     Dates: start: 20140525, end: 20140529
  4. AZTREONAM. [Concomitant]
     Active Substance: AZTREONAM
     Dates: start: 20140525, end: 20140525
  5. LEVOTHYROXINE [Concomitant]
     Active Substance: LEVOTHYROXINE
     Route: 048
  6. NIVOLUMAB [Suspect]
     Active Substance: NIVOLUMAB
     Indication: METASTATIC RENAL CELL CARCINOMA
     Dosage: LAST DOSE:07-MAY-2014
     Route: 042
     Dates: start: 20140305
  7. NORMAL SALINE [Concomitant]
     Active Substance: SODIUM CHLORIDE
     Dosage: ALSO 06-JUN-2014 TO 06-JUN-2014
     Dates: start: 20140525, end: 20140528
  8. IBUPROFEN. [Concomitant]
     Active Substance: IBUPROFEN
     Dates: start: 20140326
  9. K-DUR [Concomitant]
     Active Substance: POTASSIUM CHLORIDE
     Dosage: ALSO 30-MAY-2014-CONTD.
     Dates: start: 20140519
  10. VITAMIN D3 [Concomitant]
     Active Substance: CHOLECALCIFEROL
     Dates: start: 201301
  11. BENICAR HCT [Concomitant]
     Active Substance: HYDROCHLOROTHIAZIDE\OLMESARTAN MEDOXOMIL
     Dosage: JAN-2004 TO 25-MAY-2014; ALSO 30-MAY-2014-CONTD
     Dates: start: 200401
  12. RANITIDINE [Concomitant]
     Active Substance: RANITIDINE\RANITIDINE HYDROCHLORIDE
     Dates: start: 20140506
  13. ZOFRAN [Concomitant]
     Active Substance: ONDANSETRON HYDROCHLORIDE
     Dates: start: 20140528, end: 20140530
  14. COMPAZINE [Concomitant]
     Active Substance: PROCHLORPERAZINE MALEATE
     Dates: start: 20140530
  15. PREDNISONE. [Concomitant]
     Active Substance: PREDNISONE
     Dosage: ALSO 80 MG DAILY
     Route: 048
     Dates: start: 20140530
  16. FOLIC ACID. [Concomitant]
     Active Substance: FOLIC ACID
     Route: 048
  17. MULTIVITAMIN [Concomitant]
     Active Substance: VITAMINS
     Dates: start: 200401
  18. TYLENOL [Concomitant]
     Active Substance: ACETAMINOPHEN
     Dosage: ALSO 25-MAY-2014 TO 30-MAY-2014
     Dates: start: 20140416
  19. VANCOMYCIN [Concomitant]
     Active Substance: VANCOMYCIN
     Dates: start: 20140525, end: 20140525
  20. BACTRIM DS [Concomitant]
     Active Substance: SULFAMETHOXAZOLE\TRIMETHOPRIM
     Dosage: 1 DF=1 TAB
     Dates: start: 20140527
  21. MAGNESIUM SULFATE [Concomitant]
     Active Substance: MAGNESIUM SULFATE
     Dates: start: 20140526, end: 20140526
  22. VIACTIV [Concomitant]
     Active Substance: CALCIUM\VITAMIN D\VITAMIN K5
     Dates: start: 200401
  23. KCL RETARD [Concomitant]
     Active Substance: POTASSIUM CHLORIDE
     Dates: start: 20140519, end: 20140519
  24. PANTOPRAZOLE [Concomitant]
     Active Substance: PANTOPRAZOLE SODIUM
     Dates: start: 20140528, end: 20140529
  25. LEVAQUIN [Concomitant]
     Active Substance: LEVOFLOXACIN
     Dates: start: 20140525, end: 20140528
  26. IPILIMUMAB [Suspect]
     Active Substance: IPILIMUMAB
     Indication: METASTATIC RENAL CELL CARCINOMA
     Dosage: LAST DOSE:07-MAY-2014
     Route: 042
     Dates: start: 20140305
  27. ADVIL [Concomitant]
     Active Substance: IBUPROFEN
     Dates: start: 20140328
  28. ATENOLOL. [Concomitant]
     Active Substance: ATENOLOL
     Route: 048
     Dates: start: 20140417, end: 20140525
  29. FLAGYL [Concomitant]
     Active Substance: METRONIDAZOLE\METRONIDAZOLE HYDROCHLORIDE
     Dates: start: 20140525, end: 20140527
  30. PROTONIX [Concomitant]
     Active Substance: PANTOPRAZOLE SODIUM
     Dosage: ALSO 40MG TWICE DAILY
     Route: 048
     Dates: start: 20140528

REACTIONS (6)
  - Upper gastrointestinal haemorrhage [Recovered/Resolved]
  - Gastritis erosive [Recovered/Resolved]
  - Erosive duodenitis [Recovered/Resolved]
  - Pyrexia [Recovered/Resolved]
  - Lower gastrointestinal haemorrhage [Recovered/Resolved]
  - Anaemia [Recovered/Resolved]

NARRATIVE: CASE EVENT DATE: 20140525
